FAERS Safety Report 16025604 (Version 2)
Quarter: 2019Q1

REPORT INFORMATION
  Report Type: Report from Study
  Country: None (occurrence: US)
  Receive Date: 20190302
  Receipt Date: 20190330
  Transmission Date: 20190418
  Serious: Yes (Death, Hospitalization)
  Sender: FDA-Public Use
  Company Number: US-ABBVIE-19K-163-2682214-00

PATIENT
  Age: 70 Year
  Sex: Male

DRUGS (1)
  1. HUMIRA [Suspect]
     Active Substance: ADALIMUMAB
     Indication: RHEUMATOID ARTHRITIS
     Route: 058

REACTIONS (6)
  - Pulmonary mass [Unknown]
  - Lung disorder [Unknown]
  - Lung infection [Unknown]
  - Death [Fatal]
  - Weight decreased [Unknown]
  - Lethargy [Unknown]

NARRATIVE: CASE EVENT DATE: 201812
